FAERS Safety Report 16785759 (Version 1)
Quarter: 2019Q3

REPORT INFORMATION
  Report Type: Spontaneous
  Country: US (occurrence: US)
  Receive Date: 20190909
  Receipt Date: 20190909
  Transmission Date: 20191005
  Serious: Yes (Other)
  Sender: FDA-Public Use
  Company Number: US-PFIZER INC-2019389005

PATIENT
  Age: 3 Year
  Sex: Female
  Weight: 15.87 kg

DRUGS (1)
  1. CIPROFLOXACIN. [Suspect]
     Active Substance: CIPROFLOXACIN
     Indication: PSEUDOMONAS INFECTION
     Dosage: 5 ML, 2X/DAY (TWICE A DAY, DOSE UNKNOWN, MAY HAVE BEEN 5ML VIA G-TUBE)

REACTIONS (3)
  - Product use issue [Unknown]
  - Off label use [Unknown]
  - Ileus [Recovering/Resolving]
